FAERS Safety Report 21250332 (Version 1)
Quarter: 2022Q3

REPORT INFORMATION
  Report Type: Spontaneous
  Country: US (occurrence: None)
  Receive Date: 20220823
  Receipt Date: 20220823
  Transmission Date: 20221027
  Serious: No
  Sender: FDA-Public Use
  Company Number: None

PATIENT
  Age: 89 Year
  Sex: Male

DRUGS (1)
  1. PRALUENT [Suspect]
     Active Substance: ALIROCUMAB
     Dosage: 75MG OTHE R SUBCUTANEOUS
     Route: 058
     Dates: start: 20180301

REACTIONS (2)
  - Cerebrovascular accident [None]
  - Sleep apnoea syndrome [None]

NARRATIVE: CASE EVENT DATE: 20220707
